FAERS Safety Report 6033230-6 (Version None)
Quarter: 2008Q4

REPORT INFORMATION
  Report Type: 
  Country: None (occurrence: None)
  Receive Date: 20081224
  Receipt Date: 20081111
  Transmission Date: 20090506
  Serious: No
  Sender: FDA-Public Use
  Company Number: 2008PV037094

PATIENT
  Age: 66 Year
  Sex: Male
  Weight: 108.8633 kg

DRUGS (14)
  1. SYMLIN [Suspect]
     Indication: TYPE 2 DIABETES MELLITUS
     Dosage: 120 MCG;TID;SC; 60 MCG;TID;SC
     Route: 058
     Dates: start: 20080901, end: 20081001
  2. SYMLIN [Suspect]
     Indication: TYPE 2 DIABETES MELLITUS
     Dosage: 120 MCG;TID;SC; 60 MCG;TID;SC
     Route: 058
     Dates: start: 20081001, end: 20081101
  3. LASIX [Concomitant]
  4. LOVAZA [Concomitant]
  5. FOLIC ACID [Concomitant]
  6. MULTI-VITAMINS [Concomitant]
  7. ACIDOPHILUS [Concomitant]
  8. OMEPRAZOLE [Concomitant]
  9. LANTUS [Concomitant]
  10. ANTIBIOTICS [Concomitant]
  11. ANTARA (MICRONIZED) [Concomitant]
  12. DIOVAN [Concomitant]
  13. ZIAC [Concomitant]
  14. CARDURA [Concomitant]

REACTIONS (3)
  - BLISTER [None]
  - BURNING SENSATION [None]
  - PRURITUS [None]
